FAERS Safety Report 7497379-3 (Version None)
Quarter: 2011Q2

REPORT INFORMATION
  Report Type: 
  Country: None (occurrence: None)
  Receive Date: 20110523
  Receipt Date: 20100603
  Transmission Date: 20111010
  Serious: No
  Sender: FDA-Public Use
  Company Number: US-NOVEN-ALL1-2010-00822

PATIENT

DRUGS (3)
  1. DAYTRANA [Suspect]
     Dosage: 30 MG, 1X/DAY:QD
     Route: 062
     Dates: start: 20090101, end: 20090101
  2. DAYTRANA [Suspect]
     Dosage: 20 MG, 1X/DAY:QD
     Route: 062
     Dates: start: 20090101
  3. DAYTRANA [Suspect]
     Dosage: UNK MG, (CUT 30MG PATCH) 1X/DAY:QD
     Route: 062
     Dates: start: 20090101, end: 20090101

REACTIONS (8)
  - ABNORMAL BEHAVIOUR [None]
  - PRODUCT QUALITY ISSUE [None]
  - HALLUCINATION, VISUAL [None]
  - DRUG PRESCRIBING ERROR [None]
  - ANXIETY [None]
  - DECREASED APPETITE [None]
  - APPLICATION SITE BURN [None]
  - WRONG TECHNIQUE IN DRUG USAGE PROCESS [None]
